FAERS Safety Report 12686807 (Version 1)
Quarter: 2016Q3

REPORT INFORMATION
  Report Type: Spontaneous
  Country: RU (occurrence: RU)
  Receive Date: 20160825
  Receipt Date: 20160825
  Transmission Date: 20161109
  Serious: Yes (Hospitalization)
  Sender: FDA-Public Use
  Company Number: RU-ALLERGAN-1666712US

PATIENT
  Age: 31 Year
  Sex: Female
  Weight: 57 kg

DRUGS (3)
  1. ULIPRISTAL ACETATE UNK [Suspect]
     Active Substance: ULIPRISTAL ACETATE
     Indication: UTERINE LEIOMYOMA
     Dosage: 5 MG, QD (1 IN 1 D)
     Route: 048
     Dates: start: 20160322, end: 20160622
  2. ULIPRISTAL ACETATE UNK [Suspect]
     Active Substance: ULIPRISTAL ACETATE
     Indication: ABDOMINAL PAIN LOWER
  3. ULIPRISTAL ACETATE UNK [Suspect]
     Active Substance: ULIPRISTAL ACETATE
     Indication: MENORRHAGIA

REACTIONS (1)
  - Uterine leiomyoma [Recovered/Resolved with Sequelae]
